FAERS Safety Report 7772404-0 (Version None)
Quarter: 2011Q3

REPORT INFORMATION
  Report Type: 
  Country: None (occurrence: None)
  Receive Date: 20110922
  Receipt Date: 20110718
  Transmission Date: 20111222
  Serious: No
  Sender: FDA-Public Use
  Company Number: US-ASTRAZENECA-2011SE29195

PATIENT
  Age: 52 Year
  Sex: Male
  Weight: 74.4 kg

DRUGS (6)
  1. ATENOLOL [Concomitant]
     Indication: HYPERTENSION
  2. SEROQUEL [Suspect]
     Indication: BIPOLAR DISORDER
     Route: 048
  3. SEROQUEL [Suspect]
     Route: 048
  4. BENZTROPINE MESYLATE [Concomitant]
  5. SIMVASTATIN [Concomitant]
     Indication: BLOOD CHOLESTEROL ABNORMAL
  6. WELLBUTRIN [Concomitant]
     Indication: BIPOLAR DISORDER

REACTIONS (2)
  - INSOMNIA [None]
  - DRUG DOSE OMISSION [None]
